FAERS Safety Report 9668338 (Version 1)
Quarter: 2013Q4

REPORT INFORMATION
  Report Type: Spontaneous
  Country: US (occurrence: US)
  Receive Date: 20131104
  Receipt Date: 20131104
  Transmission Date: 20140711
  Serious: No
  Sender: FDA-Public Use
  Company Number: US-PFIZER INC-2013312218

PATIENT
  Age: 64 Year
  Sex: Female
  Weight: 111.11 kg

DRUGS (8)
  1. TOVIAZ [Suspect]
     Indication: HYPERTONIC BLADDER
     Dosage: UNK, 1X/DAY
     Route: 048
     Dates: start: 201309
  2. MYRBETRIQ [Interacting]
     Indication: HYPERTONIC BLADDER
     Dosage: 25 MG, 1X/DAY
     Route: 048
     Dates: start: 2013, end: 2013
  3. MYRBETRIQ [Interacting]
     Dosage: 50 MG, 1X/DAY
     Route: 048
     Dates: start: 2013
  4. SYNTHROID [Concomitant]
     Indication: HYPOTHYROIDISM
     Dosage: UNK
  5. OMEPRAZOLE [Concomitant]
     Dosage: UNK
  6. PRAMIPEXOLE [Concomitant]
     Dosage: 4.5 MG, 1X/DAY
  7. VIIBRYD [Concomitant]
     Dosage: UNK
  8. AROMASIN [Concomitant]
     Dosage: UNK

REACTIONS (3)
  - Drug interaction [Unknown]
  - Dysuria [Unknown]
  - Nervousness [Unknown]
